FAERS Safety Report 22349183 (Version 1)
Quarter: 2023Q2

REPORT INFORMATION
  Report Type: Spontaneous
  Country: US (occurrence: None)
  Receive Date: 20230519
  Receipt Date: 20230519
  Transmission Date: 20230722
  Serious: No
  Sender: FDA-Public Use
  Company Number: None

PATIENT
  Age: 48 Year
  Sex: Male

DRUGS (1)
  1. DIMETHYL FUMARATE [Suspect]
     Active Substance: DIMETHYL FUMARATE
     Dosage: FREQUENCY : TWICE A DAY;?
     Route: 048

REACTIONS (7)
  - Magnetic resonance imaging abnormal [None]
  - Drug ineffective [None]
  - Hypoaesthesia [None]
  - Disease recurrence [None]
  - Brain fog [None]
  - Balance disorder [None]
  - Multiple sclerosis [None]

NARRATIVE: CASE EVENT DATE: 20230421
